FAERS Safety Report 16260800 (Version 1)
Quarter: 2019Q2

REPORT INFORMATION
  Report Type: Spontaneous
  Country: DK (occurrence: DK)
  Receive Date: 20190501
  Receipt Date: 20190501
  Transmission Date: 20190711
  Serious: Yes (Hospitalization)
  Sender: FDA-Public Use
  Company Number: DK-TEVA-2019-DK-1043290

PATIENT
  Age: 80 Year
  Sex: Female

DRUGS (5)
  1. BUDENOFALK [Concomitant]
     Active Substance: BUDESONIDE
     Indication: INFLAMMATION
     Dosage: 9 MILLIGRAM DAILY; STRENGTH: 3MG?DOSE: 3CAPSULES 1 TIME DAILY FOR 8 WEEKS
     Route: 048
     Dates: start: 20180919, end: 20190218
  2. SIMVASTATIN. [Concomitant]
     Active Substance: SIMVASTATIN
     Indication: HYPERCHOLESTEROLAEMIA
     Dosage: 40 MILLIGRAM DAILY; STRENGTH: 40MG
     Route: 048
  3. PARACETAMOL [Concomitant]
     Active Substance: ACETAMINOPHEN
     Indication: PAIN
     Dosage: STRENGTH: 500MG?DOSE: 2 TABL. AS NEEDED, NO MORE THAN 4 TIMES DAILY
     Route: 048
     Dates: start: 20160314
  4. ALENDRONIC ACID [Suspect]
     Active Substance: ALENDRONIC ACID
     Indication: OSTEOPOROSIS
     Dosage: STRENGTH: 70 MG
     Route: 048
     Dates: start: 2008
  5. CLOPIDOGREL [Concomitant]
     Active Substance: CLOPIDOGREL BISULFATE
     Indication: THROMBOSIS PROPHYLAXIS
     Dosage: 75 MILLIGRAM DAILY; STRENGTH: 75MG
     Route: 048

REACTIONS (4)
  - Osteonecrosis of jaw [Not Recovered/Not Resolved]
  - Impaired healing [Unknown]
  - Sequestrectomy [Recovered/Resolved]
  - Exposed bone in jaw [Unknown]

NARRATIVE: CASE EVENT DATE: 2018
